FAERS Safety Report 18610506 (Version 1)
Quarter: 2020Q4

REPORT INFORMATION
  Report Type: Spontaneous
  Country: US (occurrence: US)
  Receive Date: 20201211
  Receipt Date: 20201211
  Transmission Date: 20210114
  Serious: No
  Sender: FDA-Public Use
  Company Number: None

PATIENT
  Age: 63 Year
  Sex: Male
  Weight: 115.6 kg

DRUGS (1)
  1. OXALIPLATIN. [Suspect]
     Active Substance: OXALIPLATIN
     Indication: COLON CANCER METASTATIC
     Dosage: ?          OTHER FREQUENCY:EVERY 14 DAYS;?
     Dates: start: 20200722, end: 20201026

REACTIONS (5)
  - Feeling hot [None]
  - Breath sounds absent [None]
  - Hypopnoea [None]
  - Unresponsive to stimuli [None]
  - Pallor [None]

NARRATIVE: CASE EVENT DATE: 20201026
